FAERS Safety Report 4269781-4 (Version None)
Quarter: 2004Q1

REPORT INFORMATION
  Report Type: 
  Country: None (occurrence: None)
  Receive Date: 20040113
  Receipt Date: 20040108
  Transmission Date: 20041129
  Serious: Yes (Other)
  Sender: FDA-Public Use
  Company Number: WAES 0401USA00608

PATIENT

DRUGS (2)
  1. [THERAPY UNSPECIFIED] [Concomitant]
  2. INVANZ [Suspect]
     Route: 042

REACTIONS (1)
  - PANCYTOPENIA [None]
